FAERS Safety Report 5091265-4 (Version None)
Quarter: 2006Q3

REPORT INFORMATION
  Report Type: 
  Country: None (occurrence: None)
  Receive Date: 20060727
  Receipt Date: 20060508
  Transmission Date: 20061208
  Serious: Yes (Other)
  Sender: FDA-Public Use
  Company Number: 2006062280

PATIENT
  Age: 48 Year
  Sex: Female
  Weight: 81.6475 kg

DRUGS (5)
  1. LYRICA [Suspect]
     Indication: FIBROMYALGIA
     Dosage: 150 MG (75 MG,2 IN 1 D)
     Dates: start: 20060505
  2. TRICOR [Concomitant]
  3. DARVOCET [Concomitant]
  4. TRAZODONE HCL [Concomitant]
  5. XANAX [Concomitant]

REACTIONS (1)
  - SOMNOLENCE [None]
